FAERS Safety Report 4836397-8 (Version None)
Quarter: 2005Q4

REPORT INFORMATION
  Report Type: 
  Country: None (occurrence: None)
  Receive Date: 20051123
  Receipt Date: 20051116
  Transmission Date: 20060501
  Serious: Yes (Other)
  Sender: FDA-Public Use
  Company Number: PHBS2005JP17032

PATIENT

DRUGS (1)
  1. DIOVAN [Suspect]
     Route: 048
     Dates: start: 20050101, end: 20050101

REACTIONS (2)
  - ASTHENIA [None]
  - FALL [None]
